FAERS Safety Report 19237172 (Version 1)
Quarter: 2021Q2

REPORT INFORMATION
  Report Type: Spontaneous
  Country: US (occurrence: US)
  Receive Date: 20210510
  Receipt Date: 20210510
  Transmission Date: 20210717
  Serious: Yes (Other)
  Sender: FDA-Public Use
  Company Number: US-GLAXOSMITHKLINE-US2021GSK099146

PATIENT
  Sex: Female

DRUGS (12)
  1. RANITIDINE. [Suspect]
     Active Substance: RANITIDINE
     Indication: DYSPEPSIA
     Dosage: 75 MG, AS NEEDED
     Route: 065
     Dates: start: 199109, end: 202002
  2. RANITIDINE. [Suspect]
     Active Substance: RANITIDINE
     Indication: GASTROOESOPHAGEAL REFLUX DISEASE
     Dosage: 300 MG, AS NEEDED
     Route: 065
     Dates: start: 199109, end: 202002
  3. RANITIDINE CAPSULE [Suspect]
     Active Substance: RANITIDINE
     Indication: DYSPEPSIA
     Dosage: 75 MG, AS NEEDED
     Route: 065
     Dates: start: 199109, end: 202002
  4. RANITIDINE CAPSULE [Suspect]
     Active Substance: RANITIDINE
     Indication: GASTROOESOPHAGEAL REFLUX DISEASE
     Dosage: 150 MG, AS NEEDED
     Route: 065
     Dates: start: 199109, end: 202002
  5. RANITIDINE. [Suspect]
     Active Substance: RANITIDINE
     Indication: GASTROOESOPHAGEAL REFLUX DISEASE
     Dosage: 150 MG, AS NEEDED
     Route: 065
     Dates: start: 199109, end: 202002
  6. RANITIDINE. [Suspect]
     Active Substance: RANITIDINE
     Dosage: 75 MG, AS NEEDED
     Dates: start: 199109, end: 202002
  7. RANITIDINE. [Suspect]
     Active Substance: RANITIDINE
     Dosage: 300 MG, AS NEEDED
     Route: 065
     Dates: start: 199109, end: 202002
  8. RANITIDINE. [Suspect]
     Active Substance: RANITIDINE
     Indication: DYSPEPSIA
     Dosage: 75 MG, AS NEEDED
     Route: 065
     Dates: start: 199109, end: 202002
  9. RANITIDINE. [Suspect]
     Active Substance: RANITIDINE
     Indication: GASTROOESOPHAGEAL REFLUX DISEASE
     Dosage: 150 MG, AS NEEDED
     Route: 065
     Dates: start: 199109, end: 202002
  10. RANITIDINE. [Suspect]
     Active Substance: RANITIDINE
     Indication: DYSPEPSIA
     Dosage: 150 MG, AS NEEDED
     Route: 065
     Dates: start: 199109, end: 202002
  11. RANITIDINE. [Suspect]
     Active Substance: RANITIDINE
     Dosage: 300 MG, AS NEEDED
     Route: 065
     Dates: start: 199109, end: 202002
  12. RANITIDINE CAPSULE [Suspect]
     Active Substance: RANITIDINE
     Dosage: 300 MG, AS NEEDED
     Route: 065
     Dates: start: 199109, end: 202002

REACTIONS (2)
  - Breast cancer [Unknown]
  - Skin cancer [Unknown]
